FAERS Safety Report 16416238 (Version 1)
Quarter: 2019Q2

REPORT INFORMATION
  Report Type: Spontaneous
  Country: US (occurrence: US)
  Receive Date: 20190611
  Receipt Date: 20190611
  Transmission Date: 20190711
  Serious: No
  Sender: FDA-Public Use
  Company Number: US-009507513-1906USA003551

PATIENT
  Sex: Male

DRUGS (7)
  1. CUBICIN [Suspect]
     Active Substance: DAPTOMYCIN
     Indication: STAPHYLOCOCCAL INFECTION
     Dosage: UNK
     Route: 042
  2. DALBAVANCIN. [Concomitant]
     Active Substance: DALBAVANCIN
     Indication: BACTERIAL INFECTION
  3. DALBAVANCIN. [Concomitant]
     Active Substance: DALBAVANCIN
     Indication: CARDIAC INFECTION
  4. DALBAVANCIN. [Concomitant]
     Active Substance: DALBAVANCIN
     Indication: DEVICE RELATED INFECTION
     Dosage: UNK
     Route: 042
  5. CUBICIN [Suspect]
     Active Substance: DAPTOMYCIN
     Indication: DEVICE RELATED INFECTION
  6. CUBICIN [Suspect]
     Active Substance: DAPTOMYCIN
     Indication: CARDIAC INFECTION
  7. CUBICIN [Suspect]
     Active Substance: DAPTOMYCIN
     Indication: CORYNEBACTERIUM INFECTION

REACTIONS (1)
  - Off label use [Unknown]
